FAERS Safety Report 12188873 (Version 1)
Quarter: 2016Q1

REPORT INFORMATION
  Report Type: Spontaneous
  Country: US (occurrence: US)
  Receive Date: 20160317
  Receipt Date: 20160317
  Transmission Date: 20160526
  Serious: No
  Sender: FDA-Public Use
  Company Number: US-PERRIGO-15US001856

PATIENT
  Age: 15 Year
  Sex: Male
  Weight: 66.67 kg

DRUGS (1)
  1. TESTOSTERONE CYPIONATE. [Suspect]
     Active Substance: TESTOSTERONE CYPIONATE
     Indication: PRECOCIOUS PUBERTY
     Dosage: 100 MG, SINGLE
     Route: 030
     Dates: start: 20150112, end: 20150112

REACTIONS (2)
  - Drug administered at inappropriate site [Recovered/Resolved]
  - No adverse event [Recovered/Resolved]

NARRATIVE: CASE EVENT DATE: 20150112
